FAERS Safety Report 9349518 (Version 1)
Quarter: 2013Q2

REPORT INFORMATION
  Report Type: Spontaneous
  Country: CA (occurrence: CA)
  Receive Date: 20130614
  Receipt Date: 20130614
  Transmission Date: 20140414
  Serious: Yes (Other)
  Sender: FDA-Public Use
  Company Number: CA-GLAXOSMITHKLINE-A1009804A

PATIENT
  Age: 59 Year
  Sex: Female

DRUGS (6)
  1. TYKERB [Suspect]
     Indication: BREAST CANCER METASTATIC
     Dosage: 1250MG PER DAY
     Route: 048
     Dates: start: 20130111, end: 20130607
  2. XELODA [Suspect]
     Indication: PRODUCT USED FOR UNKNOWN INDICATION
     Route: 065
  3. PIIMAX [Concomitant]
  4. NASONEX [Concomitant]
  5. ADVIL [Concomitant]
  6. ADVAIR [Concomitant]

REACTIONS (6)
  - Diarrhoea [Recovered/Resolved]
  - Abdominal pain [Recovered/Resolved]
  - Bone pain [Unknown]
  - Muscular weakness [Unknown]
  - Sinusitis [Unknown]
  - Breast cancer metastatic [Unknown]
